FAERS Safety Report 24770738 (Version 1)
Quarter: 2024Q4

REPORT INFORMATION
  Report Type: Spontaneous
  Country: TH (occurrence: TH)
  Receive Date: 20241224
  Receipt Date: 20241224
  Transmission Date: 20250114
  Serious: Yes (Other)
  Sender: ACCORD
  Company Number: TH-Accord-461223

PATIENT
  Age: 4 Decade
  Sex: Male

DRUGS (1)
  1. BUPROPION HYDROCHLORIDE [Suspect]
     Active Substance: BUPROPION HYDROCHLORIDE
     Dosage: EXTENDED-RELEASE TABLET (STRENGTH: 300 MG)

REACTIONS (6)
  - Toxicity to various agents [Unknown]
  - Intentional overdose [Unknown]
  - Status epilepticus [Recovered/Resolved]
  - Electrocardiogram QT prolonged [Unknown]
  - Loss of consciousness [Recovered/Resolved]
  - Dyskinesia [Unknown]
